FAERS Safety Report 4714588-4 (Version None)
Quarter: 2005Q3

REPORT INFORMATION
  Report Type: 
  Country: None (occurrence: None)
  Receive Date: 20050713
  Receipt Date: 20050713
  Transmission Date: 20060218
  Serious: Yes (Hospitalization)
  Sender: FDA-Public Use
  Company Number: None

PATIENT
  Age: 63 Year
  Sex: Female

DRUGS (7)
  1. VORICONAZOLE; VFEND; PFIZER; ANTIFUNGALS; TABLETS;; 200.0 MG [Suspect]
     Indication: FUNGAL INFECTION
     Dosage: ORAL ; 200.0 MILLIGRAM
     Route: 048
     Dates: start: 20050613, end: 20050621
  2. PRAVASTATIN [Concomitant]
  3. NIFEDIPINE [Concomitant]
  4. CYCLOSPORINE [Concomitant]
  5. AZTREONAM [Concomitant]
  6. CIPROFLOXACIN [Concomitant]
  7. VANCOMYCIN [Concomitant]

REACTIONS (1)
  - PANCREATITIS [None]
